FAERS Safety Report 19456909 (Version 1)
Quarter: 2021Q2

REPORT INFORMATION
  Report Type: Spontaneous
  Country: CA (occurrence: CA)
  Receive Date: 20210624
  Receipt Date: 20210624
  Transmission Date: 20210717
  Serious: Yes (Other)
  Sender: FDA-Public Use
  Company Number: CA-ROCHE-2854000

PATIENT
  Age: 65 Year
  Sex: Female

DRUGS (16)
  1. BENADRYL [Concomitant]
     Active Substance: DIPHENHYDRAMINE HYDROCHLORIDE
     Indication: PREMEDICATION
     Route: 048
  2. HYDROXYCHLOROQUINE [Concomitant]
     Active Substance: HYDROXYCHLOROQUINE
  3. FENTANYL. [Concomitant]
     Active Substance: FENTANYL
  4. FOLIC ACID. [Concomitant]
     Active Substance: FOLIC ACID
  5. METHYLPREDNISOLONE SODIUM SUCCINATE. [Concomitant]
     Active Substance: METHYLPREDNISOLONE SODIUM SUCCINATE
     Indication: PREMEDICATION
     Route: 042
  6. HYDROCHLOROTHIAZIDE. [Concomitant]
     Active Substance: HYDROCHLOROTHIAZIDE
  7. OLMESARTAN [Concomitant]
     Active Substance: OLMESARTAN
  8. SULFASALAZINE. [Concomitant]
     Active Substance: SULFASALAZINE
  9. RITUXIMAB. [Suspect]
     Active Substance: RITUXIMAB
     Indication: RHEUMATOID ARTHRITIS
     Route: 042
  10. MIDAZOLAM HYDROCHLORIDE. [Concomitant]
     Active Substance: MIDAZOLAM HYDROCHLORIDE
     Route: 065
  11. MORPHINE [Concomitant]
     Active Substance: MORPHINE
  12. PREDNISONE. [Concomitant]
     Active Substance: PREDNISONE
  13. ASPIRIN. [Concomitant]
     Active Substance: ASPIRIN
  14. METHOTREXATE. [Concomitant]
     Active Substance: METHOTREXATE
     Route: 037
  15. SYNTHROID [Concomitant]
     Active Substance: LEVOTHYROXINE SODIUM
  16. TYLENOL [Concomitant]
     Active Substance: ACETAMINOPHEN
     Indication: PREMEDICATION
     Route: 048

REACTIONS (6)
  - Eyelid oedema [Unknown]
  - Blood pressure systolic abnormal [Unknown]
  - Headache [Unknown]
  - Localised infection [Unknown]
  - Blood pressure systolic increased [Unknown]
  - Hepatitis [Unknown]
